FAERS Safety Report 8390573-9 (Version None)
Quarter: 2012Q2

REPORT INFORMATION
  Report Type: 
  Country: None (occurrence: None)
  Receive Date: 20120529
  Receipt Date: 20120516
  Transmission Date: 20120825
  Serious: Yes (Hospitalization)
  Sender: FDA-Public Use
  Company Number: ES-ELI_LILLY_AND_COMPANY-ES201205005891

PATIENT
  Sex: Female
  Weight: 64 kg

DRUGS (7)
  1. ACETAMINOPHEN [Concomitant]
     Indication: PAIN
     Route: 048
  2. NOLOTIL [Concomitant]
     Indication: PAIN
     Route: 048
  3. LEVOTHROID [Concomitant]
     Indication: HYPOTHYROIDISM
     Dosage: 100 MG, QD
     Route: 048
  4. LEXATIN [Concomitant]
     Indication: INSOMNIA
     Dosage: 1.5 MG, QD
     Route: 048
  5. FORTEO [Suspect]
     Indication: OSTEOPOROSIS
     Dosage: 20 UG, QD
     Route: 058
     Dates: start: 20111201
  6. ZOLPIDEM TARTRATE [Concomitant]
     Indication: INSOMNIA
     Dosage: 0.5 DF, UNK
     Route: 048
  7. ATORVASTATIN CALCIUM [Concomitant]
     Indication: BLOOD CHOLESTEROL
     Route: 048

REACTIONS (1)
  - HIP ARTHROPLASTY [None]
